FAERS Safety Report 8548096-X (Version None)
Quarter: 2012Q3

REPORT INFORMATION
  Report Type: 
  Country: None (occurrence: None)
  Receive Date: 20120730
  Receipt Date: 20120717
  Transmission Date: 20120928
  Serious: No
  Sender: FDA-Public Use
  Company Number: US-009507513-1207USA009217

PATIENT

DRUGS (3)
  1. TEMODAR [Suspect]
     Indication: GLIOBLASTOMA MULTIFORME
     Dosage: UNK
  2. TEMODAR [Suspect]
     Dosage: 21 CONSECUTIVE DAYS.
  3. BEVACIZUMAB [Concomitant]
     Indication: GLIOBLASTOMA MULTIFORME
     Dosage: 10 MG/KG, QOW,28 DAY CYCLE

REACTIONS (1)
  - DISEASE PROGRESSION [None]
